FAERS Safety Report 24983588 (Version 1)
Quarter: 2025Q1

REPORT INFORMATION
  Report Type: Spontaneous
  Country: US (occurrence: US)
  Receive Date: 20250219
  Receipt Date: 20250219
  Transmission Date: 20250409
  Serious: Yes (Hospitalization)
  Sender: CHIESI
  Company Number: US-CHIESI-2025CHF01005

PATIENT
  Age: 71 Year
  Sex: Male
  Weight: 45 kg

DRUGS (10)
  1. FERRIPROX [Suspect]
     Active Substance: DEFERIPRONE
     Indication: Thalassaemia
     Route: 048
     Dates: start: 20120523, end: 20191125
  2. FERRIPROX [Suspect]
     Active Substance: DEFERIPRONE
     Route: 048
     Dates: start: 20191126, end: 20200914
  3. FERRIPROX [Suspect]
     Active Substance: DEFERIPRONE
     Route: 048
     Dates: start: 20200915, end: 20211108
  4. FERRIPROX [Suspect]
     Active Substance: DEFERIPRONE
     Dosage: 1500 MILLIGRAM, BID
     Route: 048
     Dates: start: 20211109
  5. DIGITEK [Concomitant]
     Active Substance: DIGOXIN
     Indication: Product used for unknown indication
  6. FUROSEMIDE [Concomitant]
     Active Substance: FUROSEMIDE
     Indication: Product used for unknown indication
  7. OMEPRAZOLE [Concomitant]
     Active Substance: OMEPRAZOLE
     Indication: Product used for unknown indication
  8. MINERALS\VITAMINS [Concomitant]
     Active Substance: MINERALS\VITAMINS
     Indication: Product used for unknown indication
  9. SOTALOL [Concomitant]
     Active Substance: SOTALOL
     Indication: Product used for unknown indication
  10. ZINC [Concomitant]
     Active Substance: ZINC
     Indication: Product used for unknown indication

REACTIONS (4)
  - Gastroenteritis viral [Recovering/Resolving]
  - Bacterial infection [Recovering/Resolving]
  - Off label use [Not Recovered/Not Resolved]
  - Off label use [Not Recovered/Not Resolved]

NARRATIVE: CASE EVENT DATE: 20211109
